FAERS Safety Report 14456540 (Version 1)
Quarter: 2018Q1

REPORT INFORMATION
  Report Type: Spontaneous
  Country: US (occurrence: US)
  Receive Date: 20180130
  Receipt Date: 20180130
  Transmission Date: 20180509
  Serious: Yes (Hospitalization)
  Sender: FDA-Public Use
  Company Number: US-AMGEN-USASP2018011978

PATIENT

DRUGS (3)
  1. NEULASTA [Suspect]
     Active Substance: PEGFILGRASTIM
     Indication: HODGKIN^S DISEASE
     Dosage: UNK
     Route: 065
  2. CARBOPLATIN. [Concomitant]
     Active Substance: CARBOPLATIN
     Indication: HODGKIN^S DISEASE
     Dosage: UNK
  3. RITUXAN [Concomitant]
     Active Substance: RITUXIMAB
     Indication: HODGKIN^S DISEASE
     Dosage: UNK

REACTIONS (4)
  - Off label use [Unknown]
  - Muscle spasms [Unknown]
  - Laboratory test abnormal [Unknown]
  - Unevaluable event [Unknown]
